FAERS Safety Report 6924624-2 (Version None)
Quarter: 2010Q3

REPORT INFORMATION
  Report Type: 
  Country: None (occurrence: None)
  Receive Date: 20100815
  Receipt Date: 20100528
  Transmission Date: 20110219
  Serious: No
  Sender: FDA-Public Use
  Company Number: A0861995A

PATIENT
  Age: 48 Year
  Sex: Male

DRUGS (5)
  1. TREXIMET [Suspect]
     Indication: HEADACHE
     Dosage: 2TAB SINGLE DOSE
     Route: 048
     Dates: start: 20100527
  2. UNKNOWN INJECTION [Concomitant]
  3. ALEVE (CAPLET) [Concomitant]
  4. SOMA [Concomitant]
  5. FIORICET [Concomitant]

REACTIONS (4)
  - ANGER [None]
  - ANXIETY [None]
  - MALAISE [None]
  - THROAT TIGHTNESS [None]
